FAERS Safety Report 9209897 (Version 1)
Quarter: 2013Q2

REPORT INFORMATION
  Report Type: Spontaneous
  Country: US (occurrence: None)
  Receive Date: 20130403
  Receipt Date: 20130403
  Transmission Date: 20140414
  Serious: Yes (Hospitalization)
  Sender: FDA-Public Use
  Company Number: None

PATIENT
  Age: 62 Year
  Sex: Male
  Weight: 89.5 kg

DRUGS (1)
  1. ERBITUX (CETUXIMAB) [Suspect]

REACTIONS (6)
  - Infusion related reaction [None]
  - Pruritus [None]
  - Erythema [None]
  - Palmar erythema [None]
  - Blood pressure decreased [None]
  - Confusional state [None]
